FAERS Safety Report 7704523-9 (Version None)
Quarter: 2011Q3

REPORT INFORMATION
  Report Type: 
  Country: None (occurrence: None)
  Receive Date: 20110823
  Receipt Date: 20110815
  Transmission Date: 20111222
  Serious: Yes (Hospitalization)
  Sender: FDA-Public Use
  Company Number: US-GLAXOSMITHKLINE-A0778747A

PATIENT
  Age: 57 Year
  Sex: Female

DRUGS (9)
  1. PHENOBARBITAL TAB [Suspect]
     Indication: PRODUCT USED FOR UNKNOWN INDICATION
     Dosage: 32MG TWICE PER DAY
     Route: 065
  2. TOVIAZ [Suspect]
     Indication: INCONTINENCE
     Route: 065
     Dates: start: 20110417, end: 20110501
  3. NEXIUM [Concomitant]
  4. MINOXIDIL [Concomitant]
  5. LAMICTAL [Suspect]
     Indication: EPILEPSY
     Dosage: 900MG PER DAY
     Route: 048
     Dates: start: 19960601
  6. SYNTHROID [Concomitant]
  7. LIPITOR [Concomitant]
  8. LEVOTHYROXINE SODIUM [Concomitant]
  9. ALLEGRA [Concomitant]

REACTIONS (17)
  - IRRITABILITY [None]
  - FACIAL PAIN [None]
  - CONVULSION [None]
  - TREMOR [None]
  - SCRATCH [None]
  - FOOD ALLERGY [None]
  - INSOMNIA [None]
  - HOSTILITY [None]
  - CONFUSIONAL STATE [None]
  - BACK PAIN [None]
  - SWELLING FACE [None]
  - LIP SWELLING [None]
  - PRURITUS [None]
  - DRUG INEFFECTIVE [None]
  - URTICARIA [None]
  - SOMNOLENCE [None]
  - EYELID PTOSIS [None]
